FAERS Safety Report 9068222 (Version 1)
Quarter: 2013Q1

REPORT INFORMATION
  Report Type: Spontaneous
  Country: FR (occurrence: FR)
  Receive Date: 20130206
  Receipt Date: 20130206
  Transmission Date: 20140127
  Serious: Yes (Other)
  Sender: FDA-Public Use
  Company Number: FR-PFIZER INC-2013046630

PATIENT
  Sex: Female

DRUGS (1)
  1. EFFEXOR LP [Suspect]

REACTIONS (1)
  - Uterine polyp [Unknown]
